FAERS Safety Report 25841054 (Version 1)
Quarter: 2025Q3

REPORT INFORMATION
  Report Type: Spontaneous
  Country: BR (occurrence: BR)
  Receive Date: 20250924
  Receipt Date: 20250924
  Transmission Date: 20251021
  Serious: Yes (Life-Threatening, Hospitalization, Other)
  Sender: SANDOZ
  Company Number: BR-MLMSERVICE-20201029-2558276-1

PATIENT
  Age: 3 Year
  Sex: Female

DRUGS (23)
  1. CYTARABINE [Suspect]
     Active Substance: CYTARABINE
     Route: 065
     Dates: start: 2014
  2. CYTARABINE [Suspect]
     Active Substance: CYTARABINE
     Route: 065
     Dates: start: 2014
  3. CYTARABINE [Suspect]
     Active Substance: CYTARABINE
     Route: 065
     Dates: start: 2014
  4. CYTARABINE [Suspect]
     Active Substance: CYTARABINE
     Route: 065
     Dates: start: 2014
  5. CYTARABINE [Suspect]
     Active Substance: CYTARABINE
     Route: 065
     Dates: start: 2014
  6. CYTARABINE [Suspect]
     Active Substance: CYTARABINE
     Route: 065
  7. CYTARABINE [Suspect]
     Active Substance: CYTARABINE
     Indication: Acute monocytic leukaemia
     Route: 065
     Dates: start: 2014
  8. CYTARABINE [Suspect]
     Active Substance: CYTARABINE
     Route: 065
     Dates: start: 2014
  9. CYTARABINE [Suspect]
     Active Substance: CYTARABINE
     Route: 065
     Dates: start: 2014
  10. ETOPOSIDE [Suspect]
     Active Substance: ETOPOSIDE
     Indication: Acute monocytic leukaemia
     Route: 065
     Dates: start: 2014
  11. ETOPOSIDE [Suspect]
     Active Substance: ETOPOSIDE
     Route: 065
     Dates: start: 2014
  12. ETOPOSIDE [Suspect]
     Active Substance: ETOPOSIDE
     Route: 065
     Dates: start: 2014
  13. ETOPOSIDE [Suspect]
     Active Substance: ETOPOSIDE
     Route: 065
     Dates: start: 2014
  14. FILGRASTIM [Suspect]
     Active Substance: FILGRASTIM
     Indication: Acute monocytic leukaemia
     Route: 065
     Dates: start: 2014
  15. FLUDARABINE [Suspect]
     Active Substance: FLUDARABINE PHOSPHATE
     Indication: Acute monocytic leukaemia
     Route: 065
     Dates: start: 201401
  16. IDARUBICIN [Suspect]
     Active Substance: IDARUBICIN
     Indication: Acute monocytic leukaemia
     Route: 065
     Dates: start: 2014
  17. IDARUBICIN [Suspect]
     Active Substance: IDARUBICIN
     Route: 065
     Dates: start: 2014
  18. IDARUBICIN [Suspect]
     Active Substance: IDARUBICIN
     Route: 065
     Dates: start: 2014
  19. MERCAPTOPURINE [Suspect]
     Active Substance: MERCAPTOPURINE
     Indication: Acute monocytic leukaemia
     Route: 065
     Dates: start: 2014
  20. MITOXANTRONE [Suspect]
     Active Substance: MITOXANTRONE HYDROCHLORIDE
     Indication: Acute monocytic leukaemia
     Route: 065
     Dates: start: 2014
  21. CEFEPIME [Concomitant]
     Active Substance: CEFEPIME HYDROCHLORIDE
     Indication: Product used for unknown indication
     Route: 065
  22. CEFUROXIME [Concomitant]
     Active Substance: CEFUROXIME
     Indication: Product used for unknown indication
     Route: 065
  23. VANCOMYCIN [Concomitant]
     Active Substance: VANCOMYCIN
     Indication: Product used for unknown indication
     Route: 065

REACTIONS (4)
  - Haemophagocytic lymphohistiocytosis [Not Recovered/Not Resolved]
  - Febrile neutropenia [Unknown]
  - Splenomegaly [Unknown]
  - Pancytopenia [Unknown]

NARRATIVE: CASE EVENT DATE: 20140101
